FAERS Safety Report 5040428-2 (Version None)
Quarter: 2006Q2

REPORT INFORMATION
  Report Type: 
  Country: None (occurrence: None)
  Receive Date: 20060630
  Receipt Date: 20060626
  Transmission Date: 20061013
  Serious: Yes (Hospitalization)
  Sender: FDA-Public Use
  Company Number: DE-GLAXOSMITHKLINE-D0050127A

PATIENT
  Age: 34 Year
  Sex: Male
  Weight: 85 kg

DRUGS (4)
  1. QUILONUM RETARD [Suspect]
     Indication: SCHIZOAFFECTIVE DISORDER
     Dosage: 1350MG PER DAY
     Route: 048
     Dates: start: 19990101, end: 20060302
  2. TIMONIL [Suspect]
     Indication: SCHIZOAFFECTIVE DISORDER
     Dosage: 600MG PER DAY
     Route: 048
     Dates: start: 19990101, end: 20060302
  3. ZYPREXA [Concomitant]
     Indication: SCHIZOAFFECTIVE DISORDER
     Dosage: 25MG PER DAY
     Route: 048
     Dates: start: 19990101
  4. SOLIAN [Concomitant]
     Indication: SCHIZOAFFECTIVE DISORDER
     Dosage: 400MG PER DAY
     Route: 048
     Dates: start: 20000101

REACTIONS (6)
  - CEREBELLAR SYNDROME [None]
  - COORDINATION ABNORMAL [None]
  - DRUG INTERACTION [None]
  - DYSARTHRIA [None]
  - NYSTAGMUS [None]
  - SPEECH DISORDER [None]
